FAERS Safety Report 8957151 (Version 1)
Quarter: 2012Q4

REPORT INFORMATION
  Report Type: Report from Study
  Country: CA (occurrence: CA)
  Receive Date: 20121211
  Receipt Date: 20121211
  Transmission Date: 20130627
  Serious: Yes (Hospitalization)
  Sender: FDA-Public Use
  Company Number: CA-UCBSA-072482

PATIENT
  Sex: Male
  Weight: 3.72 kg

DRUGS (6)
  1. CIMZIA [Suspect]
     Indication: RHEUMATOID ARTHRITIS
     Route: 064
     Dates: start: 20110303, end: 20111230
  2. FOLIC ACID [Concomitant]
     Indication: VITAMIN SUPPLEMENTATION
     Route: 064
     Dates: end: 20121007
  3. PREDNISONE [Concomitant]
     Indication: RHEUMATOID ARTHRITIS
     Route: 064
     Dates: start: 2006, end: 20121007
  4. PLAQUENIL [Concomitant]
     Indication: RHEUMATOID ARTHRITIS
     Route: 064
     Dates: start: 2012, end: 20121007
  5. CALCIUM/VIT D [Concomitant]
     Indication: VITAMIN SUPPLEMENTATION
     Dosage: 1 TAB
     Route: 064
     Dates: end: 20121007
  6. ISONIAZID [Concomitant]
     Indication: TUBERCULOSIS
     Route: 064
     Dates: start: 20110129, end: 20121007

REACTIONS (3)
  - Blood glucose decreased [Unknown]
  - Blood potassium decreased [Unknown]
  - Foetal exposure during pregnancy [Recovered/Resolved]
